FAERS Safety Report 5156730-X (Version None)
Quarter: 2006Q4

REPORT INFORMATION
  Report Type: 
  Country: None (occurrence: None)
  Receive Date: 20061115
  Receipt Date: 20061031
  Transmission Date: 20070319
  Serious: Yes (Congenital Anomaly)
  Sender: FDA-Public Use
  Company Number: 2006-279

PATIENT
  Age: 25 Year
  Sex: Female

DRUGS (6)
  1. FLUCONAZOLE [Suspect]
     Dosage: 400MG PER DAY
  2. ERYTHROMYCIN [Suspect]
     Dosage: 4 G PER DAY
  3. CEFOTIAM HYDROCHLORIDE [Concomitant]
  4. GENTAMICIN [Concomitant]
  5. HYDROCORTISONE [Concomitant]
  6. NOREPINEPHEINE [Concomitant]

REACTIONS (6)
  - BACTERIA URINE IDENTIFIED [None]
  - BACTERIAL ANTIGEN POSITIVE [None]
  - DILATATION VENTRICULAR [None]
  - ELECTROCARDIOGRAM QT CORRECTED INTERVAL PROLONGED [None]
  - TORSADE DE POINTES [None]
  - VENTRICULAR FIBRILLATION [None]
